FAERS Safety Report 9746380 (Version 1)
Quarter: 2013Q4

REPORT INFORMATION
  Report Type: Spontaneous
  Country: US (occurrence: US)
  Receive Date: 20131211
  Receipt Date: 20131211
  Transmission Date: 20140711
  Serious: Yes (Hospitalization)
  Sender: FDA-Public Use
  Company Number: US-GLAXOSMITHKLINE-A1052253A

PATIENT
  Age: 72 Year
  Sex: Female

DRUGS (10)
  1. ADVAIR [Suspect]
     Indication: ASTHMA
     Dosage: 1PUFF TWICE PER DAY
     Route: 055
     Dates: start: 201309
  2. METFORMIN [Concomitant]
  3. AMLODIPINE [Concomitant]
  4. LOSARTAN [Concomitant]
  5. CARVEDILOL [Concomitant]
  6. ALLOPURINOL [Concomitant]
  7. CALCIUM [Concomitant]
  8. OMEPRAZOLE [Concomitant]
  9. VITAMIN C [Concomitant]
  10. CENTRUM VITAMIN [Concomitant]

REACTIONS (2)
  - Dyspnoea [Recovering/Resolving]
  - Drug administration error [Recovering/Resolving]
